FAERS Safety Report 22168184 (Version 1)
Quarter: 2023Q2

REPORT INFORMATION
  Report Type: Spontaneous
  Country: IL (occurrence: IL)
  Receive Date: 20230403
  Receipt Date: 20230403
  Transmission Date: 20230721
  Serious: Yes (Other)
  Sender: FDA-Public Use
  Company Number: IL-009507513-2303ISR010517

PATIENT
  Age: 70 Year
  Sex: Male

DRUGS (3)
  1. BRIDION [Suspect]
     Active Substance: SUGAMMADEX
     Dosage: 200 MILLIGRAM
  2. BRIDION [Suspect]
     Active Substance: SUGAMMADEX
     Dosage: 200 MILLIGRAM
  3. ROCURONIUM BROMIDE [Suspect]
     Active Substance: ROCURONIUM BROMIDE
     Dosage: AT THE BEGINNING OF THE OPERATION HE RECEIVED 50 MG AND IN TOTAL HE RECEIVED 220 MG OF ROCURONIUM.

REACTIONS (2)
  - Respiratory distress [Recovered/Resolved]
  - Recurrence of neuromuscular blockade [Recovered/Resolved]
